FAERS Safety Report 9008715 (Version 1)
Quarter: 2013Q1

REPORT INFORMATION
  Report Type: Spontaneous
  Country: BE (occurrence: BE)
  Receive Date: 20130111
  Receipt Date: 20130111
  Transmission Date: 20140127
  Serious: Yes (Other)
  Sender: FDA-Public Use
  Company Number: BE-ROCHE-1178052

PATIENT
  Age: 49 Year
  Sex: Female
  Weight: 60 kg

DRUGS (8)
  1. HERCEPTIN [Suspect]
     Indication: BREAST CANCER
     Route: 065
     Dates: start: 200804, end: 201109
  2. HERCEPTIN [Suspect]
     Route: 065
     Dates: start: 201203
  3. XELODA [Suspect]
     Indication: BREAST CANCER
     Route: 065
     Dates: start: 201109, end: 201203
  4. FEMARA [Suspect]
     Indication: BREAST CANCER
     Route: 065
     Dates: start: 200809
  5. ZOLADEX [Suspect]
     Indication: BREAST CANCER
     Route: 065
     Dates: start: 200809
  6. LAPATINIB [Suspect]
     Indication: BREAST CANCER
     Route: 065
     Dates: start: 201109, end: 201203
  7. VINORELBINE [Suspect]
     Indication: BREAST CANCER
     Route: 065
     Dates: start: 201203
  8. PACLITAXEL [Suspect]
     Indication: BREAST CANCER
     Route: 065
     Dates: start: 200804, end: 200809

REACTIONS (1)
  - Disease progression [Unknown]
